FAERS Safety Report 4808821-8 (Version None)
Quarter: 2005Q4

REPORT INFORMATION
  Report Type: 
  Country: None (occurrence: None)
  Receive Date: 20051025
  Receipt Date: 20050629
  Transmission Date: 20060501
  Serious: Yes (Other)
  Sender: FDA-Public Use
  Company Number: PHEH2005US07316

PATIENT
  Sex: Female

DRUGS (2)
  1. ZOMETA [Suspect]
     Dosage: UNK, QMO
     Route: 042
     Dates: end: 20040901
  2. AREDIA [Suspect]
     Indication: MULTIPLE MYELOMA
     Dosage: UNK, QMO
     Route: 042
     Dates: start: 20040913, end: 20050501

REACTIONS (11)
  - BLOOD CREATININE INCREASED [None]
  - ERYTHEMA [None]
  - IMPAIRED HEALING [None]
  - MALNUTRITION [None]
  - ORAL PAIN [None]
  - ORAL SOFT TISSUE DISORDER [None]
  - OSTEOMYELITIS [None]
  - OSTEONECROSIS [None]
  - SOFT TISSUE INFECTION [None]
  - SWELLING [None]
  - WOUND DEBRIDEMENT [None]
